FAERS Safety Report 6245947-9 (Version None)
Quarter: 2009Q2

REPORT INFORMATION
  Report Type: 
  Country: None (occurrence: None)
  Receive Date: 20090626
  Receipt Date: 20080808
  Transmission Date: 20091009
  Serious: No
  Sender: FDA-Public Use
  Company Number: A0741999A

PATIENT
  Age: 44 Year
  Sex: Female

DRUGS (2)
  1. IMITREX [Suspect]
     Indication: MIGRAINE
     Route: 048
  2. IMITREX INJECTION [Concomitant]

REACTIONS (3)
  - DRUG INEFFECTIVE [None]
  - FATIGUE [None]
  - HEADACHE [None]
